FAERS Safety Report 7380611-4 (Version None)
Quarter: 2011Q1

REPORT INFORMATION
  Report Type: 
  Country: None (occurrence: None)
  Receive Date: 20110321
  Receipt Date: 20110311
  Transmission Date: 20110831
  Serious: Yes (Death)
  Sender: FDA-Public Use
  Company Number: US-2011-10135

PATIENT
  Age: 52 Year
  Sex: Female

DRUGS (4)
  1. FLUDARABINE (FLUDARABINE PHOSPHATE) [Suspect]
     Indication: STEM CELL TRANSPLANT
     Dosage: 30 MG/M2/D
  2. ALEMTUZUMAB (ALEMTUZUMAB) [Suspect]
     Indication: STEM CELL TRANSPLANT
     Dosage: 20 MG DAILY DOSE
  3. BUSULFEX [Suspect]
     Indication: STEM CELL TRANSPLANT
     Dosage: 3.2 MG/KG, DAILY DOSE
  4. CLOFARABINE (CLOFARABINE) [Concomitant]

REACTIONS (1)
  - DEATH [None]
